FAERS Safety Report 26011013 (Version 1)
Quarter: 2025Q4

REPORT INFORMATION
  Report Type: Spontaneous
  Country: CN (occurrence: CN)
  Receive Date: 20251107
  Receipt Date: 20251107
  Transmission Date: 20260119
  Serious: Yes (Life-Threatening, Hospitalization)
  Sender: ACCORD
  Company Number: CN-Accord-511589

PATIENT
  Age: 24 Year
  Sex: Female
  Weight: 40.4 kg

DRUGS (4)
  1. METHOTREXATE [Interacting]
     Active Substance: METHOTREXATE
     Indication: Ectopic pregnancy
     Dosage: A SINGLE INTRAMUSCULAR INJECTION (50 MG/M2, 60MG, IM)
     Route: 030
     Dates: start: 20250528, end: 20250528
  2. PENICILLIN G BENZATHINE [Interacting]
     Active Substance: PENICILLIN G BENZATHINE
     Indication: Syphilis
     Dosage: 2.4 10*6 IU
     Dates: start: 20250513, end: 20250513
  3. PENICILLIN G BENZATHINE [Interacting]
     Active Substance: PENICILLIN G BENZATHINE
     Indication: Syphilis
     Dosage: 2.4 10*6 IU
     Dates: start: 20250521, end: 20250521
  4. PENICILLIN G BENZATHINE [Interacting]
     Active Substance: PENICILLIN G BENZATHINE
     Indication: Syphilis
     Dosage: 2.4 10*6 IU
     Dates: start: 20250528

REACTIONS (14)
  - Nausea [Recovered/Resolved]
  - Vomiting [Recovered/Resolved]
  - Pruritus [Recovered/Resolved]
  - Oedema peripheral [Recovered/Resolved]
  - Face oedema [Recovered/Resolved]
  - Stomatitis [Recovered/Resolved]
  - Oropharyngeal pain [Recovered/Resolved]
  - Rash maculo-papular [Recovered/Resolved]
  - Renal impairment [Recovered/Resolved]
  - Febrile neutropenia [Recovered/Resolved]
  - Myelosuppression [Recovered/Resolved]
  - Toxicity to various agents [Unknown]
  - Drug-genetic interaction [Unknown]
  - Drug interaction [Unknown]

NARRATIVE: CASE EVENT DATE: 20250529
